FAERS Safety Report 14385567 (Version 3)
Quarter: 2019Q1

REPORT INFORMATION
  Report Type: Spontaneous
  Country: US (occurrence: US)
  Receive Date: 20180115
  Receipt Date: 20190123
  Transmission Date: 20190417
  Serious: Yes (Other)
  Sender: FDA-Public Use
  Company Number: US-SA-2016SA234125

PATIENT
  Age: 67 Year
  Sex: Female
  Weight: 77 kg

DRUGS (9)
  1. PEGFILGRASTIM [Concomitant]
     Active Substance: PEGFILGRASTIM
  2. ADRIAMYCIN [Concomitant]
     Active Substance: DOXORUBICIN HYDROCHLORIDE
     Dosage: UNK UNK,QCY
     Route: 065
  3. NEOSAR [Concomitant]
     Active Substance: CYCLOPHOSPHAMIDE
     Dosage: UNK UNK,QCY
     Route: 065
  4. ONDANSETRON [Concomitant]
     Active Substance: ONDANSETRON
  5. DOCETAXEL. [Suspect]
     Active Substance: DOCETAXEL
     Indication: BREAST CANCER FEMALE
     Dosage: 80-160MG
     Route: 042
     Dates: start: 20130716, end: 20130716
  6. DOCETAXEL. [Suspect]
     Active Substance: DOCETAXEL
     Dosage: 80-160MG
     Route: 042
     Dates: start: 20130917, end: 20130917
  7. DOXYCYCLINE HYDROCHLORIDE [Concomitant]
     Active Substance: DOXYCYCLINE HYDROCHLORIDE
     Dosage: UNK UNK,QCY
     Route: 065
  8. SODIUM CHLORIDE. [Concomitant]
     Active Substance: SODIUM CHLORIDE
  9. HEPARIN [Concomitant]
     Active Substance: HEPARIN SODIUM

REACTIONS (6)
  - Impaired quality of life [Unknown]
  - Alopecia [Recovering/Resolving]
  - Pain [Unknown]
  - Psychological trauma [Unknown]
  - Emotional distress [Unknown]
  - Anxiety [Unknown]

NARRATIVE: CASE EVENT DATE: 201407
